FAERS Safety Report 21118164 (Version 1)
Quarter: 2022Q3

REPORT INFORMATION
  Report Type: Spontaneous
  Country: US (occurrence: US)
  Receive Date: 20220722
  Receipt Date: 20220722
  Transmission Date: 20221026
  Serious: No
  Sender: FDA-Public Use
  Company Number: US-BIOGEN-2022BI01140570

PATIENT
  Sex: Female

DRUGS (9)
  1. VUMERITY [Suspect]
     Active Substance: DIROXIMEL FUMARATE
     Indication: Multiple sclerosis
     Route: 050
  2. CYCLOMYDRIL [Concomitant]
     Active Substance: CYCLOPENTOLATE HYDROCHLORIDE\PHENYLEPHRINE HYDROCHLORIDE
     Route: 050
  3. COZAAR [Concomitant]
     Active Substance: LOSARTAN POTASSIUM
     Route: 050
  4. LIPITOR [Concomitant]
     Active Substance: ATORVASTATIN CALCIUM
     Dosage: UD
     Route: 050
  5. LOPRESSOR [Concomitant]
     Active Substance: METOPROLOL TARTRATE
     Route: 050
  6. ATARAX [Concomitant]
     Active Substance: HYDROXYZINE HYDROCHLORIDE
     Route: 050
  7. METOPROLOL TARTRATE [Concomitant]
     Active Substance: METOPROLOL TARTRATE
     Route: 050
  8. EMGALITY [Concomitant]
     Active Substance: GALCANEZUMAB-GNLM
     Dosage: 120MG/ML
     Route: 050
  9. OZEMPIC [Concomitant]
     Active Substance: SEMAGLUTIDE
     Route: 050

REACTIONS (1)
  - Gastrointestinal disorder [Unknown]
